FAERS Safety Report 5892015-1 (Version None)
Quarter: 2008Q3

REPORT INFORMATION
  Report Type: 
  Country: None (occurrence: None)
  Receive Date: 20080922
  Receipt Date: 20080917
  Transmission Date: 20090109
  Serious: Yes (Hospitalization)
  Sender: FDA-Public Use
  Company Number: US-B.I. PHARMACEUTICALS,INC./RIDGEFIELD-2008-BP-14585BP

PATIENT
  Sex: Male

DRUGS (2)
  1. SPIRIVA [Suspect]
     Indication: EMPHYSEMA
     Route: 055
  2. ADVAIR DISKUS 100/50 [Suspect]
     Indication: EMPHYSEMA

REACTIONS (5)
  - CONSTIPATION [None]
  - EMPHYSEMA [None]
  - PNEUMONIA [None]
  - SPINAL FRACTURE [None]
  - URINARY TRACT OBSTRUCTION [None]
